FAERS Safety Report 14843360 (Version 2)
Quarter: 2018Q2

REPORT INFORMATION
  Report Type: Spontaneous
  Country: US (occurrence: US)
  Receive Date: 20180503
  Receipt Date: 20180605
  Transmission Date: 20180711
  Serious: No
  Sender: FDA-Public Use
  Company Number: US-009507513-1805USA001182

PATIENT
  Age: 15 Year
  Sex: Female
  Weight: 73.47 kg

DRUGS (3)
  1. EFFEXOR XR [Concomitant]
     Active Substance: VENLAFAXINE HYDROCHLORIDE
     Indication: DEPRESSION
     Dosage: 37.5 MG, QD
     Route: 048
  2. NEXPLANON [Suspect]
     Active Substance: ETONOGESTREL
     Indication: CONTRACEPTION
     Dosage: 1 ROD, EVERY 3 YEARS
     Route: 059
     Dates: start: 20180430
  3. ZYBAN [Concomitant]
     Active Substance: BUPROPION HYDROCHLORIDE
     Dosage: 150 MG, QD
     Route: 048

REACTIONS (4)
  - Device deployment issue [Unknown]
  - Complication associated with device [Not Recovered/Not Resolved]
  - Device difficult to use [Recovered/Resolved]
  - Device kink [Not Recovered/Not Resolved]

NARRATIVE: CASE EVENT DATE: 20180430
